FAERS Safety Report 4484785-4 (Version None)
Quarter: 2004Q4

REPORT INFORMATION
  Report Type: 
  Country: None (occurrence: None)
  Receive Date: 20041025
  Receipt Date: 20041019
  Transmission Date: 20050328
  Serious: Yes (Other)
  Sender: FDA-Public Use
  Company Number: IL-MERCK-0410ISR00029

PATIENT
  Age: 65 Year
  Sex: Male

DRUGS (4)
  1. VIOXX [Suspect]
     Indication: BACK PAIN
     Route: 048
     Dates: start: 20010101, end: 20040401
  2. ASPIRIN [Concomitant]
     Route: 048
  3. ATENOLOL [Concomitant]
     Indication: HYPERTENSION
     Route: 048
  4. BETAHISTINE HYDROCHLORIDE [Concomitant]
     Route: 048

REACTIONS (1)
  - CEREBROVASCULAR ACCIDENT [None]
